FAERS Safety Report 8741984 (Version 2)
Quarter: 2012Q4

REPORT INFORMATION
  Report Type: 
  Country: US (occurrence: US)
  Receive Date: 20120824
  Receipt Date: 20121029
  Transmission Date: 20130627
  Serious: No
  Sender: FDA-Public Use
  Company Number: US-009507513-1208USA005890

PATIENT

DRUGS (1)
  1. SAPHRIS [Suspect]
     Indication: BIPOLAR DISORDER
     Dosage: RAPID DISSOLVE
     Route: 060

REACTIONS (1)
  - Oral discomfort [Unknown]
